FAERS Safety Report 9639341 (Version 1)
Quarter: 2013Q4

REPORT INFORMATION
  Report Type: Spontaneous
  Country: DK (occurrence: None)
  Receive Date: 20131021
  Receipt Date: 20131021
  Transmission Date: 20140711
  Serious: Yes (Death)
  Sender: FDA-Public Use
  Company Number: SYM-2013-11651

PATIENT
  Age: 13 Month
  Sex: Female

DRUGS (12)
  1. ZOVIR [Suspect]
     Indication: COMBINED IMMUNODEFICIENCY
     Route: 048
     Dates: start: 201302
  2. VOLTAREN [Suspect]
     Indication: PAIN
     Route: 054
     Dates: start: 201305
  3. BACTRIM [Suspect]
     Indication: COMBINED IMMUNODEFICIENCY
     Route: 048
     Dates: start: 201302
  4. BIKLIN [Suspect]
     Indication: DISSEMINATED TUBERCULOSIS
     Route: 042
     Dates: start: 20130524
  5. AVELOX [Suspect]
     Indication: DISSEMINATED TUBERCULOSIS
     Route: 042
     Dates: start: 20130524
  6. EREMFAT [Suspect]
     Indication: DISSEMINATED TUBERCULOSIS
     Route: 042
     Dates: start: 20130524
  7. ISONIAZID [Suspect]
     Indication: DISSEMINATED TUBERCULOSIS
     Route: 042
     Dates: start: 20130524
  8. MYAMBUTOL [Suspect]
     Indication: DISSEMINATED TUBERCULOSIS
     Route: 048
     Dates: start: 20130524
  9. PARACETAMOL (PARACETAMOL) [Suspect]
     Indication: PAIN
     Route: 048
     Dates: start: 201302
  10. DIFLUCAN [Suspect]
     Indication: COMBINED IMMUNODEFICIENCY
     Route: 048
     Dates: start: 201302
  11. PROLEUKIN [Suspect]
     Indication: DISSEMINATED TUBERCULOSIS
     Route: 058
     Dates: start: 20130822
  12. NORMAL IMMUNOGLOBULIN (IMMUNOGLOBULIN  HUMAN NORMAL) [Concomitant]

REACTIONS (7)
  - Respiratory arrest [None]
  - Cardiac arrest [None]
  - Dyskinesia [None]
  - Abdominal distension [None]
  - Oedema peripheral [None]
  - Vomiting [None]
  - Drug interaction [None]
